FAERS Safety Report 4838304-0 (Version None)
Quarter: 2005Q4

REPORT INFORMATION
  Report Type: 
  Country: None (occurrence: None)
  Receive Date: 20051123
  Receipt Date: 20051111
  Transmission Date: 20060501
  Serious: Yes (Hospitalization)
  Sender: FDA-Public Use
  Company Number: 2005-02866

PATIENT
  Age: 59 Year
  Sex: Male
  Weight: 83 kg

DRUGS (4)
  1. TRELSTAR DEPOT [Suspect]
     Indication: PROSTATE CANCER
     Dosage: 6 MG, SINGLE, INTRAMUSCULAR; 3 MG, SINGLE, INTRAMUSCULAR
     Route: 030
     Dates: start: 20050403, end: 20050403
  2. TRELSTAR DEPOT [Suspect]
     Indication: PROSTATE CANCER
     Dosage: 6 MG, SINGLE, INTRAMUSCULAR; 3 MG, SINGLE, INTRAMUSCULAR
     Route: 030
     Dates: start: 20050508, end: 20050508
  3. EULEXIN [Suspect]
     Indication: PROSTATE CANCER
     Dosage: 250 MG, TID, ORAL
     Route: 048
     Dates: start: 20050403, end: 20050527
  4. ATENOLOL [Concomitant]

REACTIONS (3)
  - ARTERY DISSECTION [None]
  - INTESTINAL INFARCTION [None]
  - MESENTERIC ARTERY THROMBOSIS [None]
